FAERS Safety Report 10172680 (Version 3)
Quarter: 2014Q2

REPORT INFORMATION
  Report Type: Spontaneous
  Country: KR (occurrence: KR)
  Receive Date: 20140515
  Receipt Date: 20140624
  Transmission Date: 20141212
  Serious: No
  Sender: FDA-Public Use
  Company Number: KR-B.I. PHARMACEUTICALS,INC./RIDGEFIELD-2014-BI-21128YA

PATIENT
  Age: 72 Year
  Sex: Male

DRUGS (4)
  1. TAMSULOSINA [Suspect]
     Indication: BENIGN PROSTATIC HYPERPLASIA
     Dosage: 0.2 MG
     Route: 048
  2. VESICARE [Suspect]
     Indication: NOCTURIA
     Dosage: 5 MG
     Route: 048
  3. VESICARE [Suspect]
     Dosage: 5 MG
     Route: 048
     Dates: start: 20140428
  4. MINIRIN [Concomitant]
     Dosage: 0.1 MG
     Route: 065

REACTIONS (3)
  - Urinary retention [Recovered/Resolved]
  - Urinary retention [Recovered/Resolved]
  - Nocturia [Not Recovered/Not Resolved]
